FAERS Safety Report 21048110 (Version 2)
Quarter: 2022Q3

REPORT INFORMATION
  Report Type: Spontaneous
  Country: US (occurrence: US)
  Receive Date: 20220706
  Receipt Date: 20220928
  Transmission Date: 20221027
  Serious: Yes (Disabling, Other)
  Sender: FDA-Public Use
  Company Number: US-SANOFI-01171395

PATIENT
  Age: 78 Year
  Sex: Female

DRUGS (1)
  1. ACT ANTICAVITY FLUORIDE MINT [Suspect]
     Active Substance: SODIUM FLUORIDE
     Dosage: UNK

REACTIONS (6)
  - Bedridden [Unknown]
  - Impaired driving ability [Unknown]
  - Spinal fracture [Unknown]
  - Accident [Unknown]
  - Mobility decreased [Unknown]
  - Fracture pain [Unknown]
